FAERS Safety Report 5278296-6 (Version None)
Quarter: 2007Q1

REPORT INFORMATION
  Report Type: 
  Country: None (occurrence: None)
  Receive Date: 20070328
  Receipt Date: 20070327
  Transmission Date: 20070707
  Serious: Yes (Hospitalization)
  Sender: FDA-Public Use
  Company Number: US-BRISTOL-MYERS SQUIBB COMPANY-13690342

PATIENT
  Age: 61 Year
  Sex: Male

DRUGS (5)
  1. ERBITUX [Suspect]
     Indication: TONGUE NEOPLASM MALIGNANT STAGE UNSPECIFIED
     Route: 042
     Dates: start: 20070116
  2. CISPLATIN [Suspect]
     Indication: TONGUE NEOPLASM MALIGNANT STAGE UNSPECIFIED
     Route: 042
     Dates: start: 20070116
  3. COUMADIN [Concomitant]
  4. DIGOXIN [Concomitant]
  5. METOPROLOL SUCCINATE [Concomitant]

REACTIONS (2)
  - SYNCOPE [None]
  - VENTRICULAR TACHYCARDIA [None]
